FAERS Safety Report 7465624-6 (Version None)
Quarter: 2011Q2

REPORT INFORMATION
  Report Type: 
  Country: None (occurrence: None)
  Receive Date: 20110509
  Receipt Date: 20110428
  Transmission Date: 20111010
  Serious: Yes (Other)
  Sender: FDA-Public Use
  Company Number: GB-ASTRAZENECA-2011SE24416

PATIENT
  Age: 57 Year
  Sex: Male

DRUGS (2)
  1. KENALOG [Suspect]
  2. MARCAINE [Suspect]
     Dosage: 2.5 MLS, 1 DF
     Route: 037

REACTIONS (5)
  - MALAISE [None]
  - PERIORBITAL OEDEMA [None]
  - HYPERHIDROSIS [None]
  - FEELING COLD [None]
  - SWELLING FACE [None]
